FAERS Safety Report 9089273 (Version 3)
Quarter: 2013Q2

REPORT INFORMATION
  Report Type: Spontaneous
  Country: JP (occurrence: JP)
  Receive Date: 20130201
  Receipt Date: 20130407
  Transmission Date: 20140414
  Serious: Yes (Other)
  Sender: FDA-Public Use
  Company Number: JP-009507513-1301JPN014196

PATIENT
  Age: 72 Year
  Sex: Female
  Weight: 41 kg

DRUGS (6)
  1. PEGINTRON [Suspect]
     Indication: CHRONIC HEPATITIS C
     Dosage: 1.5 MICROGRAM PER KILOGRAM, QW
     Route: 058
     Dates: start: 20121128, end: 20121226
  2. REBETOL [Suspect]
     Indication: CHRONIC HEPATITIS C
     Dosage: 600 MG, QD
     Route: 048
     Dates: start: 20121128, end: 20130103
  3. TELAVIC [Suspect]
     Indication: CHRONIC HEPATITIS C
     Dosage: 2250 MG, QD
     Route: 048
     Dates: start: 20121128, end: 20121203
  4. TELAVIC [Suspect]
     Dosage: 1500 MG, QD
     Route: 048
     Dates: start: 20121204, end: 20130103
  5. LAENNEC [Concomitant]
     Indication: CHRONIC HEPATITIS C
     Dosage: 2 ML, QW
     Route: 058
     Dates: start: 20121204, end: 20121212
  6. LAENNEC [Concomitant]
     Dosage: 4 ML, QW
     Route: 058
     Dates: start: 20121219, end: 20121226

REACTIONS (1)
  - Anaemia [Not Recovered/Not Resolved]
